FAERS Safety Report 6410468-7 (Version None)
Quarter: 2009Q4

REPORT INFORMATION
  Report Type: 
  Country: None (occurrence: None)
  Receive Date: 20091022
  Receipt Date: 20091014
  Transmission Date: 20100525
  Serious: Yes (Other)
  Sender: FDA-Public Use
  Company Number: US-GILEAD-2009-0023137

PATIENT
  Sex: Female

DRUGS (4)
  1. LETAIRIS [Suspect]
     Indication: SYSTEMIC SCLEROSIS
     Route: 048
     Dates: start: 20090227
  2. LISINOPRIL [Concomitant]
  3. ASPIRIN [Concomitant]
  4. SYNTHROID [Concomitant]

REACTIONS (2)
  - LIVER FUNCTION TEST ABNORMAL [None]
  - OEDEMA [None]
